FAERS Safety Report 12886925 (Version 2)
Quarter: 2017Q1

REPORT INFORMATION
  Report Type: Spontaneous
  Country: US (occurrence: US)
  Receive Date: 20161026
  Receipt Date: 20170127
  Transmission Date: 20170428
  Serious: No
  Sender: FDA-Public Use
  Company Number: US-ENDO PHARMACEUTICALS INC.-2016-006109

PATIENT
  Age: 43 Year
  Sex: Female
  Weight: 64.47 kg

DRUGS (1)
  1. BELBUCA [Suspect]
     Active Substance: BUPRENORPHINE HYDROCHLORIDE
     Indication: CYSTITIS INTERSTITIAL
     Route: 002
     Dates: start: 201608

REACTIONS (14)
  - Depression [Not Recovered/Not Resolved]
  - Heart rate increased [Recovered/Resolved]
  - Weight decreased [Not Recovered/Not Resolved]
  - Pain [Unknown]
  - Withdrawal syndrome [Unknown]
  - Back pain [Not Recovered/Not Resolved]
  - Dizziness [Recovered/Resolved]
  - Breakthrough pain [Unknown]
  - Product adhesion issue [Not Recovered/Not Resolved]
  - Drug ineffective [Not Recovered/Not Resolved]
  - Mobility decreased [Not Recovered/Not Resolved]
  - Orthostatic hypotension [Recovered/Resolved]
  - Hypertension [Recovered/Resolved]
  - Drug effect decreased [Unknown]

NARRATIVE: CASE EVENT DATE: 2016
